FAERS Safety Report 6165384-5 (Version None)
Quarter: 2009Q2

REPORT INFORMATION
  Report Type: 
  Country: None (occurrence: None)
  Receive Date: 20090423
  Receipt Date: 20090420
  Transmission Date: 20091009
  Serious: Yes (Other)
  Sender: FDA-Public Use
  Company Number: ES-BRISTOL-MYERS SQUIBB COMPANY-14593990

PATIENT
  Age: 46 Year
  Sex: Male

DRUGS (3)
  1. STAVUDINE [Suspect]
     Indication: HIV INFECTION
     Dates: start: 20020715, end: 20030618
  2. LAMIVUDINE [Suspect]
     Indication: HIV INFECTION
     Dates: start: 20020715, end: 20030618
  3. LOPINAVIR AND RITONAVIR [Suspect]
     Indication: HIV INFECTION
     Dates: start: 20020707, end: 20030618

REACTIONS (3)
  - DRUG RESISTANCE [None]
  - IMMUNE RECONSTITUTION SYNDROME [None]
  - PERICARDITIS TUBERCULOUS [None]
